FAERS Safety Report 19490282 (Version 1)
Quarter: 2021Q3

REPORT INFORMATION
  Report Type: Spontaneous
  Country: DE (occurrence: DE)
  Receive Date: 20210705
  Receipt Date: 20210705
  Transmission Date: 20211014
  Serious: Yes (Hospitalization)
  Sender: FDA-Public Use
  Company Number: DE-TEVA-2021-DE-1928307

PATIENT
  Age: 59 Year
  Sex: Female
  Weight: 43 kg

DRUGS (14)
  1. DIMETICON [Concomitant]
     Dosage: FOR FLATULENCE UP TO 6 TIMES A DAY, JUICE
     Route: 048
  2. TORASEMID [Concomitant]
     Active Substance: TORSEMIDE
     Dosage: 5 MILLIGRAM DAILY;   1?0?0?0,
     Route: 048
  3. METAMIZOL [Concomitant]
     Active Substance: METAMIZOLE SODIUM
     Dosage: 2000 MILLIGRAM DAILY;   1?1?1?1,
     Route: 048
  4. LEVOTHYROXIN?NATRIUM [Concomitant]
     Active Substance: LEVOTHYROXINE SODIUM
     Dosage: 125 MICROGRAM DAILY;  1?0?0?0,
     Route: 048
  5. CARBOPLATIN. [Suspect]
     Active Substance: CARBOPLATIN
     Dosage: ACCORDING TO THE SCHEME
     Route: 042
  6. METOCLOPRAMID [Concomitant]
     Active Substance: METOCLOPRAMIDE
     Dosage: 30 MILLIGRAM DAILY;   1?1?1?0,
     Route: 048
  7. FENTANYL. [Concomitant]
     Active Substance: FENTANYL
     Dosage: 25 UG, CHANGE EVERY 3 DAYS, PATCH
     Route: 062
  8. PREGABALIN. [Concomitant]
     Active Substance: PREGABALIN
     Dosage: 50 MILLIGRAM DAILY;   0?0?1?0,
     Route: 048
  9. PACLITAXEL. [Suspect]
     Active Substance: PACLITAXEL
     Dosage: ACCORDING TO THE SCHEME,
     Route: 042
  10. BETAMETHASON [Concomitant]
     Active Substance: BETAMETHASONE
     Dosage: MORNING AND EVENING,
     Route: 003
  11. LORAZEPAM. [Concomitant]
     Active Substance: LORAZEPAM
     Dosage: UP TO 3 TIMES A DAY,
     Route: 060
  12. ALLOPURINOL. [Concomitant]
     Active Substance: ALLOPURINOL
     Dosage: 100 MILLIGRAM DAILY;   1?0?0?0,
     Route: 048
  13. PANTOPRAZOL [Concomitant]
     Active Substance: PANTOPRAZOLE SODIUM
     Dosage: 40 MILLIGRAM DAILY;  1?0?0?0,
     Route: 048
  14. FENTANYL. [Concomitant]
     Active Substance: FENTANYL
     Dosage: 200 UG, UP TO 6 TIMES A DAY, MAX 1X PER HOUR,
     Route: 060

REACTIONS (3)
  - Oedema peripheral [Unknown]
  - Dyspnoea [Unknown]
  - General physical health deterioration [Unknown]
